FAERS Safety Report 11343720 (Version 1)
Quarter: 2015Q3

REPORT INFORMATION
  Report Type: Report from Study
  Country: US (occurrence: US)
  Receive Date: 20150806
  Receipt Date: 20150806
  Transmission Date: 20151125
  Serious: Yes (Other)
  Sender: FDA-Public Use
  Company Number: PHEH2015US014661

PATIENT
  Sex: Male

DRUGS (4)
  1. EXTAVIA [Suspect]
     Active Substance: INTERFERON BETA-1B
     Dosage: 0.187 MG, QOD (0.75 ML), WEEK 5-6
     Route: 058
  2. EXTAVIA [Suspect]
     Active Substance: INTERFERON BETA-1B
     Dosage: 0.25 MG, QOD (1 ML), WEEK 7+
     Route: 058
  3. EXTAVIA [Suspect]
     Active Substance: INTERFERON BETA-1B
     Indication: MULTIPLE SCLEROSIS
     Dosage: 0.062 MG, QOD (0.25 ML), WEEK 1-2
     Route: 058
  4. EXTAVIA [Suspect]
     Active Substance: INTERFERON BETA-1B
     Dosage: 0.125 MG, QOD (0.5 ML)WEEK 3-4
     Route: 058

REACTIONS (7)
  - Eye pain [Unknown]
  - Neuralgia [Unknown]
  - Discomfort [Unknown]
  - Electric shock [Unknown]
  - Multiple sclerosis [Unknown]
  - Visual acuity reduced [Unknown]
  - Facial pain [Unknown]
